FAERS Safety Report 5751518-0 (Version None)
Quarter: 2008Q2

REPORT INFORMATION
  Report Type: 
  Country: None (occurrence: None)
  Receive Date: 20080528
  Receipt Date: 20080515
  Transmission Date: 20081010
  Serious: Yes (Other)
  Sender: FDA-Public Use
  Company Number: PHHY2008GB06100

PATIENT
  Age: 68 Year
  Sex: Female

DRUGS (5)
  1. GLEEVEC [Suspect]
     Indication: CHRONIC MYELOID LEUKAEMIA
     Dosage: 600 MG, UNK
     Route: 048
     Dates: start: 20020620
  2. GLEEVEC [Suspect]
     Dosage: 400 MG, UNK
  3. GLEEVEC [Suspect]
     Dosage: 500 MG, UNK
  4. GLEEVEC [Suspect]
     Dosage: 400 MG, UNK
  5. ALLOPURINOL [Concomitant]
     Dates: start: 20010525

REACTIONS (5)
  - ACUTE MYOCARDIAL INFARCTION [None]
  - DECREASED APPETITE [None]
  - FALL [None]
  - MOUTH ULCERATION [None]
  - PELVIC FRACTURE [None]
